FAERS Safety Report 19428694 (Version 1)
Quarter: 2021Q2

REPORT INFORMATION
  Report Type: Spontaneous
  Country: US (occurrence: US)
  Receive Date: 20210617
  Receipt Date: 20210617
  Transmission Date: 20210717
  Serious: Yes (Disabling)
  Sender: FDA-Public Use
  Company Number: None

PATIENT
  Age: 69 Year
  Sex: Male
  Weight: 67.5 kg

DRUGS (2)
  1. CARVEDILOL. [Suspect]
     Active Substance: CARVEDILOL
     Indication: HYPERTENSION
     Route: 048
  2. ZOLOFT [Suspect]
     Active Substance: SERTRALINE HYDROCHLORIDE
     Route: 048

REACTIONS (19)
  - Loss of consciousness [None]
  - Photosensitivity reaction [None]
  - Hypoaesthesia [None]
  - Grip strength decreased [None]
  - Paraesthesia [None]
  - Joint effusion [None]
  - Gastrointestinal disorder [None]
  - Road traffic accident [None]
  - Burning sensation [None]
  - Constipation [None]
  - Parosmia [None]
  - Hypophagia [None]
  - Muscular weakness [None]
  - Hyperhidrosis [None]
  - Gait disturbance [None]
  - Jaw disorder [None]
  - Weight decreased [None]
  - Decreased activity [None]
  - Abdominal discomfort [None]

NARRATIVE: CASE EVENT DATE: 20191001
